FAERS Safety Report 23011114 (Version 2)
Quarter: 2023Q4

REPORT INFORMATION
  Report Type: Report from Study
  Country: CH (occurrence: CH)
  Receive Date: 20230929
  Receipt Date: 20231130
  Transmission Date: 20240110
  Serious: Yes (Death, Other)
  Sender: FDA-Public Use
  Company Number: CH-JNJFOC-20230952406

PATIENT
  Sex: Male

DRUGS (3)
  1. TECVAYLI [Suspect]
     Active Substance: TECLISTAMAB-CQYV
     Indication: Plasma cell myeloma
     Dosage: 5TH LINE THERAPY?REDUCED DOSE, 5 X OVER 8 WEEKS, INTERVALS WERE IRREGULAR
     Route: 058
     Dates: start: 2022
  2. TECVAYLI [Suspect]
     Active Substance: TECLISTAMAB-CQYV
     Dosage: 5TH LINE THERAPY?REDUCED DOSE, 5 X OVER 8 WEEKS, INTERVALS WERE IRREGULAR
     Route: 058
     Dates: start: 2022
  3. TECVAYLI [Suspect]
     Active Substance: TECLISTAMAB-CQYV
     Dosage: 5TH LINE THERAPY?REDUCED DOSE, 5 X OVER 8 WEEKS, INTERVALS WERE IRREGULAR
     Route: 058
     Dates: start: 2022

REACTIONS (3)
  - Death [Fatal]
  - Thrombocytopenia [Recovered/Resolved]
  - Off label use [Unknown]

NARRATIVE: CASE EVENT DATE: 20220101
